FAERS Safety Report 4758576-0 (Version None)
Quarter: 2005Q3

REPORT INFORMATION
  Report Type: 
  Country: None (occurrence: None)
  Receive Date: 20050901
  Receipt Date: 20050823
  Transmission Date: 20060218
  Serious: Yes (Hospitalization)
  Sender: FDA-Public Use
  Company Number: FR-JNJFOC-20050806357

PATIENT
  Age: 51 Year
  Sex: Female

DRUGS (13)
  1. ZALDIAR [Suspect]
     Indication: PAIN
     Route: 048
  2. BAUME AROMA [Suspect]
  3. BAUME AROMA [Suspect]
  4. BAUME AROMA [Suspect]
  5. BAUME AROMA [Suspect]
  6. BAUME AROMA [Suspect]
     Indication: PAIN
  7. IBUPROFEN [Suspect]
     Indication: PAIN
  8. APRANAX [Suspect]
     Indication: PAIN
  9. BIOCALYPTOL A LA PHOLCODINE [Suspect]
  10. BIOCALYPTOL A LA PHOLCODINE [Suspect]
  11. BIOCALYPTOL A LA PHOLCODINE [Suspect]
  12. BIOCALYPTOL A LA PHOLCODINE [Suspect]
  13. BIOCALYPTOL A LA PHOLCODINE [Suspect]
     Indication: THROAT IRRITATION

REACTIONS (1)
  - VASCULAR PURPURA [None]
